FAERS Safety Report 9266699 (Version 1)
Quarter: 2013Q2

REPORT INFORMATION
  Report Type: Spontaneous
  Country: FR (occurrence: FR)
  Receive Date: 20130502
  Receipt Date: 20130502
  Transmission Date: 20140414
  Serious: Yes (Hospitalization)
  Sender: FDA-Public Use
  Company Number: FR-BRISTOL-MYERS SQUIBB COMPANY-18849851

PATIENT
  Age: 82 Year
  Sex: Female

DRUGS (4)
  1. ERBITUX SOLN FOR INF [Suspect]
     Indication: COLON CANCER
     Dosage: 3RD COURSE
     Route: 042
     Dates: start: 20130327, end: 20130327
  2. CAMPTO [Suspect]
     Indication: COLON CANCER
     Dosage: 3RD COURSE
     Route: 042
     Dates: start: 20130327, end: 20130327
  3. AMLOR [Concomitant]
     Indication: HYPERTENSION
  4. TAHOR [Concomitant]
     Indication: DYSLIPIDAEMIA

REACTIONS (2)
  - Dysarthria [Recovered/Resolved]
  - Paraesthesia [Recovered/Resolved]
